FAERS Safety Report 24690166 (Version 1)
Quarter: 2024Q4

REPORT INFORMATION
  Report Type: Spontaneous
  Country: US (occurrence: None)
  Receive Date: 20241202
  Receipt Date: 20241202
  Transmission Date: 20250115
  Serious: No
  Sender: Public
  Company Number: None

PATIENT
  Sex: Female

DRUGS (5)
  1. WINREVAIR [Suspect]
     Active Substance: SOTATERCEPT-CSRK
     Dosage: 90MG EVERY 3 WEKS UNDER THE SKIN?
     Dates: start: 202409
  2. WINREVAIR [Concomitant]
     Active Substance: SOTATERCEPT-CSRK
  3. SOD CHLOR SDV (50ML/FTV) [Concomitant]
  4. TREPROSTINIL [Concomitant]
     Active Substance: TREPROSTINIL
  5. OPSUMIT [Concomitant]
     Active Substance: MACITENTAN

REACTIONS (1)
  - Chest pain [None]
